FAERS Safety Report 16894702 (Version 1)
Quarter: 2019Q4

REPORT INFORMATION
  Report Type: Spontaneous
  Country: GB (occurrence: GB)
  Receive Date: 20191008
  Receipt Date: 20191008
  Transmission Date: 20200122
  Serious: Yes (Life-Threatening, Other)
  Sender: FDA-Public Use
  Company Number: GB-MYLANLABS-2019M1092646

PATIENT
  Age: 50 Year
  Sex: Male
  Weight: 96 kg

DRUGS (11)
  1. EZETIMIBE. [Suspect]
     Active Substance: EZETIMIBE
     Indication: PRODUCT USED FOR UNKNOWN INDICATION
     Dosage: 10 MG, UNK
     Route: 048
     Dates: start: 20181115
  2. NAPROXEN. [Suspect]
     Active Substance: NAPROXEN
     Indication: PRODUCT USED FOR UNKNOWN INDICATION
     Dosage: 1 G MAX VARIABLE, PRN
     Route: 048
     Dates: start: 20150112
  3. CETRIZINE [Concomitant]
     Active Substance: CETIRIZINE HYDROCHLORIDE
     Dosage: 10 MG MAX VARIABLE, PRN
     Route: 048
     Dates: start: 20180501
  4. ACYCLOVIR                          /00587301/ [Concomitant]
     Active Substance: ACYCLOVIR
     Dosage: 800 MG MAX VARIABLE, PRN
     Route: 048
     Dates: start: 20010701
  5. NEVIRAPINE. [Concomitant]
     Active Substance: NEVIRAPINE
     Dosage: 400 MG, UNK
     Route: 048
     Dates: start: 20020301
  6. ZOPICLONE [Concomitant]
     Active Substance: ZOPICLONE
     Dosage: 3.75 MG, VARIABLE, PRN
     Route: 048
  7. KIVEXA [Suspect]
     Active Substance: ABACAVIR SULFATE\LAMIVUDINE
     Indication: PRODUCT USED FOR UNKNOWN INDICATION
     Dosage: 1 DF(TABLET), QD
     Route: 048
     Dates: start: 20140911
  8. IBUPROFEN. [Concomitant]
     Active Substance: IBUPROFEN
     Dosage: 1200 MG,  MAX VARIABLE, PRN
     Route: 048
     Dates: start: 20150112
  9. HYCOSAN [Concomitant]
     Dosage: VARIABLE DROPS NUMBER, NO MAX, PRN
     Route: 061
     Dates: start: 20180620
  10. PARACETAMOL [Concomitant]
     Active Substance: ACETAMINOPHEN
     Dosage: 2 G MAX VARIABLE, PRN
     Route: 048
     Dates: start: 20150112
  11. PROPRANOLOL [Concomitant]
     Active Substance: PROPRANOLOL HYDROCHLORIDE
     Dosage: 40 MG, UNK
     Route: 048
     Dates: start: 20150112

REACTIONS (1)
  - Adenocarcinoma pancreas [Not Recovered/Not Resolved]

NARRATIVE: CASE EVENT DATE: 20190514
